FAERS Safety Report 10740097 (Version 4)
Quarter: 2015Q2

REPORT INFORMATION
  Report Type: Spontaneous
  Country: JP (occurrence: JP)
  Receive Date: 20150127
  Receipt Date: 20150518
  Transmission Date: 20150821
  Serious: Yes (Hospitalization)
  Sender: FDA-Public Use
  Company Number: JP-009507513-1501JPN009591

PATIENT
  Age: 60 Year
  Sex: Female
  Weight: 50 kg

DRUGS (6)
  1. THIATON [Suspect]
     Active Substance: TIQUIZIUM BROMIDE
     Dosage: DAILY DOSAGE UNKNOWN
     Route: 048
  2. LYRICA [Suspect]
     Active Substance: PREGABALIN
     Dosage: DAILY DOSAGE UNKNOWN
     Route: 048
  3. CLARITIN [Suspect]
     Active Substance: LORATADINE
     Dosage: DAILY DOSAGE UNKNOWN
     Route: 048
  4. LOXONIN [Suspect]
     Active Substance: LOXOPROFEN SODIUM
     Dosage: DAILY DOSAGE UNKNOWN
     Route: 048
  5. TAKEPRON [Suspect]
     Active Substance: LANSOPRAZOLE
     Dosage: DAILY DOSAGE UNKNOWN
     Route: 048
  6. SPIROPENT [Suspect]
     Active Substance: CLENBUTEROL HYDROCHLORIDE
     Dosage: DAILY DOSAGE UNKNOWN
     Route: 048

REACTIONS (1)
  - Eosinophilic cystitis [Recovering/Resolving]
